FAERS Safety Report 8727992 (Version 2)
Quarter: 2012Q4

REPORT INFORMATION
  Report Type: 
  Country: US (occurrence: US)
  Receive Date: 20120816
  Receipt Date: 20120920
  Transmission Date: 20130627
  Serious: Yes (Life-Threatening, Hospitalization)
  Sender: FDA-Public Use
  Company Number: PHEH2011US013190

PATIENT
  Sex: Male

DRUGS (3)
  1. FOCALIN XR [Suspect]
     Dosage: 10mg in the morning and 15mg in the evening
  2. RISPERIDONE [Concomitant]
     Dosage: UNK UKN, UNK
  3. FLUOXETINE [Concomitant]
     Dosage: UNK UKN, UNK

REACTIONS (3)
  - Suicide attempt [Unknown]
  - Suicidal ideation [Unknown]
  - Product quality issue [None]
